FAERS Safety Report 14631957 (Version 1)
Quarter: 2018Q1

REPORT INFORMATION
  Report Type: Spontaneous
  Country: US (occurrence: US)
  Receive Date: 20180313
  Receipt Date: 20180313
  Transmission Date: 20180509
  Serious: Yes (Hospitalization)
  Sender: FDA-Public Use
  Company Number: US-AMGEN-USASP2018033583

PATIENT
  Age: 79 Year
  Sex: Female

DRUGS (5)
  1. RITUXAN [Concomitant]
     Active Substance: RITUXIMAB
     Indication: SMALL CELL LUNG CANCER RECURRENT
     Dosage: UNK
     Dates: start: 201706
  2. BENDAMUSTINE [Concomitant]
     Active Substance: BENDAMUSTINE
     Indication: SMALL CELL LUNG CANCER RECURRENT
     Dosage: UNK UNK, CYCLICAL (DAYS 1 AN 2 OF A 28 DAY CYCLE)
     Dates: start: 201801
  3. RITUXAN [Concomitant]
     Active Substance: RITUXIMAB
     Indication: NON-HODGKIN^S LYMPHOMA RECURRENT
     Dosage: UNK UNK, CYCLICAL (DAYS 1 AND 2 OF A 28 DAY CYCLE)
     Dates: start: 201801
  4. BENDAMUSTINE [Concomitant]
     Active Substance: BENDAMUSTINE
     Indication: NON-HODGKIN^S LYMPHOMA RECURRENT
  5. NEULASTA [Suspect]
     Active Substance: PEGFILGRASTIM
     Indication: WHITE BLOOD CELL COUNT DECREASED
     Dosage: UNK
     Route: 065
     Dates: start: 201802

REACTIONS (4)
  - Bone pain [Unknown]
  - Pain [Unknown]
  - Blood electrolytes abnormal [Recovered/Resolved]
  - Pyrexia [Recovered/Resolved]

NARRATIVE: CASE EVENT DATE: 201802
